FAERS Safety Report 9311925 (Version 1)
Quarter: 2013Q1

REPORT INFORMATION
  Report Type: Spontaneous
  Country: GB (occurrence: None)
  Receive Date: 20121227
  Receipt Date: 20121227
  Transmission Date: 20140127
  Serious: Yes (Other)
  Sender: FDA-Public Use
  Company Number: GER/UKI/12/0023986

PATIENT
  Age: 59 Year
  Sex: Male
  Weight: 88 kg

DRUGS (3)
  1. OLANZAPINE (OLANZAPINE) [Suspect]
     Indication: BIPOLAR I DISORDER
     Route: 048
     Dates: start: 20080627
  2. LAMOTRIGINE (LAMOTRIGINE) [Concomitant]
  3. PRIADEL (LITHIUM CARBONATE) [Concomitant]

REACTIONS (2)
  - Type 2 diabetes mellitus [None]
  - Glycosylated haemoglobin increased [None]
